FAERS Safety Report 7928735-4 (Version None)
Quarter: 2011Q4

REPORT INFORMATION
  Report Type: 
  Country: None (occurrence: None)
  Receive Date: 20111118
  Receipt Date: 20111114
  Transmission Date: 20120403
  Serious: Yes (Other)
  Sender: FDA-Public Use
  Company Number: CHPA2011CA015817

PATIENT
  Sex: Female

DRUGS (4)
  1. EFFEXOR XR [Concomitant]
     Dosage: 112.5 MG, QD
  2. AROMASIN [Concomitant]
  3. TRANSDERM VOYAGER [Suspect]
     Indication: MOTION SICKNESS
     Dosage: 1 DF, UNK
     Route: 062
     Dates: start: 20110917
  4. ALENDRONATE SODIUM [Concomitant]
     Dosage: 70 MG WEEKLY

REACTIONS (8)
  - DIZZINESS [None]
  - NAUSEA [None]
  - DYSPEPSIA [None]
  - FATIGUE [None]
  - INSOMNIA [None]
  - EPIGASTRIC DISCOMFORT [None]
  - HYPERHIDROSIS [None]
  - AMNESIA [None]
